FAERS Safety Report 20001537 (Version 1)
Quarter: 2021Q4

REPORT INFORMATION
  Report Type: Spontaneous
  Country: US (occurrence: US)
  Receive Date: 20211027
  Receipt Date: 20211027
  Transmission Date: 20220304
  Serious: Yes (Other)
  Sender: FDA-Public Use
  Company Number: US-BION-010104

PATIENT
  Sex: Female

DRUGS (1)
  1. EPANED [Suspect]
     Active Substance: ENALAPRIL MALEATE
     Indication: Product used for unknown indication
     Dosage: STRENGTH: 1MG/ML, 150ML LIQUID
     Route: 048
     Dates: start: 20211008

REACTIONS (2)
  - Product container seal issue [Unknown]
  - Product taste abnormal [Unknown]

NARRATIVE: CASE EVENT DATE: 20211008
